FAERS Safety Report 6100207-1 (Version None)
Quarter: 2009Q1

REPORT INFORMATION
  Report Type: 
  Country: None (occurrence: None)
  Receive Date: 20090303
  Receipt Date: 20090217
  Transmission Date: 20090719
  Serious: Yes (Hospitalization)
  Sender: FDA-Public Use
  Company Number: CL-ROCHE-615483

PATIENT
  Age: 74 Year
  Sex: Male
  Weight: 64 kg

DRUGS (8)
  1. XELODA [Suspect]
     Indication: COLON CANCER
     Dosage: REPORTED DOSE: 6 TABLETS OF 500 MG.
     Route: 048
     Dates: start: 20081021, end: 20081209
  2. XELODA [Suspect]
     Dosage: 5 TABLETS OF 500 MG.
     Route: 048
     Dates: start: 20081210, end: 20090112
  3. XELODA [Suspect]
     Dosage: 5 TABLETS OF 500 MG.
     Route: 048
     Dates: start: 20090210
  4. OXALIPLATIN [Suspect]
     Indication: COLON CANCER
     Route: 065
     Dates: start: 20081021, end: 20090112
  5. OXALIPLATIN [Suspect]
     Route: 065
     Dates: start: 20090210
  6. ATENOLOL [Concomitant]
  7. LIPITOR [Concomitant]
     Dosage: LIPITOR FILM COATED TABLETS
  8. AMOXICILLIN AND CLAVULANATE POTASSIUM [Concomitant]
     Dosage: CLAVINEX FILM COATED TABLET. LAST DOSE SCHEDULED ON 20 FEB 2009.

REACTIONS (5)
  - CONVULSION [None]
  - CORONARY ARTERY STENOSIS [None]
  - DYSPNOEA [None]
  - MALAISE [None]
  - MYOCARDIAL INFARCTION [None]
